FAERS Safety Report 23462293 (Version 3)
Quarter: 2024Q4

REPORT INFORMATION
  Report Type: Report from Study
  Country: EG (occurrence: EG)
  Receive Date: 20240131
  Receipt Date: 20241203
  Transmission Date: 20250115
  Serious: Yes (Life-Threatening, Other)
  Sender: SANDOZ
  Company Number: EG-002147023-NVSC2022EG057124

PATIENT
  Age: 32 Year
  Sex: Female
  Weight: 57 kg

DRUGS (19)
  1. ARAVA [Suspect]
     Active Substance: LEFLUNOMIDE
     Dosage: 1 DF, QD ??-???-2023
     Route: 048
  2. ARAVA [Suspect]
     Active Substance: LEFLUNOMIDE
     Indication: Rheumatoid arthritis
     Dosage: UNK,2 TABLET DAILY FOR  TWO WEEKS THEN DECREASED BY HER HCP TO BE 1 TABLET ONCE DAILY (ONGOING REGIM
     Route: 048
  3. CELECOXIB [Suspect]
     Active Substance: CELECOXIB
     Indication: Rheumatoid arthritis
     Dosage: 2 DF, QD (CAPSULE HARD) START DATE: ??-???-2023
     Route: 048
  4. CIPRO [Suspect]
     Active Substance: CIPROFLOXACIN HYDROCHLORIDE
     Indication: Rheumatoid arthritis
     Dosage: 2 DF, QD  ??-???-2023
     Route: 048
  5. HYRIMOZ [Suspect]
     Active Substance: ADALIMUMAB-ADAZ
     Indication: Rheumatoid arthritis
     Dosage: 1 DOSAGE FORM (EVERY 15 DAYS) START DATE: 20-JAN-2022
     Route: 058
     Dates: end: 2023
  6. HYRIMOZ [Suspect]
     Active Substance: ADALIMUMAB-ADAZ
     Dosage: 40 MG, EVERY OTHER WEEK
     Route: 058
  7. DILTIAZEM HYDROCHLORIDE [Concomitant]
     Active Substance: DILTIAZEM HYDROCHLORIDE
     Indication: Cardiac disorder
     Dosage: UNK, TID
     Route: 065
     Dates: start: 2023
  8. ASPIRIN [Concomitant]
     Active Substance: ASPIRIN
     Indication: Cardiac disorder
     Dosage: 2 DF, QD
     Route: 065
     Dates: start: 2023
  9. ASPIRIN [Concomitant]
     Active Substance: ASPIRIN
     Indication: Coronary artery thrombosis
  10. CALCIUM [Concomitant]
     Active Substance: CALCIUM
     Indication: Rheumatoid arthritis
     Dosage: UNK,1 TABLET TWICE WEEKLY,STARTED YEAR AGO
     Route: 048
  11. CORTISONE [Concomitant]
     Active Substance: CORTISONE
     Indication: Rheumatoid arthritis
     Dosage: ONE AMPOULE FOR 2 DAYS AND THEN STOPPED FOR REST OF THE MONTH
     Route: 065
     Dates: start: 2019
  12. Decapreno [Concomitant]
     Indication: Product used for unknown indication
     Dosage: 2000 IU (1 AMPOULE EVERY 2 WEEKS)
     Route: 065
     Dates: start: 202401, end: 202404
  13. Decapreno [Concomitant]
     Dosage: UNK
     Route: 065
     Dates: start: 202407
  14. NEBIVOLOL HYDROCHLORIDE [Concomitant]
     Active Substance: NEBIVOLOL HYDROCHLORIDE
     Indication: Cardiac disorder
     Dosage: 2 TIMES DAILY
     Route: 065
     Dates: start: 2023
  15. NEXIUM [Concomitant]
     Active Substance: ESOMEPRAZOLE MAGNESIUM
     Indication: Gastrointestinal disorder
     Dosage: 40 MG, QD (1 TABLET EVERY DAY)
     Route: 065
     Dates: start: 2023
  16. OXITROPIL [Concomitant]
     Indication: Product used for unknown indication
     Dosage: 1200 MG, BID
     Route: 065
     Dates: start: 2023
  17. GINKGO [Concomitant]
     Active Substance: GINKGO
     Indication: Cardiac disorder
     Dosage: 40 MG, BID
     Route: 065
     Dates: start: 2023
  18. GINKGO [Concomitant]
     Active Substance: GINKGO
     Indication: Coronary artery thrombosis
  19. VITAMIN D [Concomitant]
     Active Substance: VITAMIN D NOS
     Indication: Rheumatoid arthritis
     Dosage: UNK, 1 TABLET ONCE WEEKLY STARTED YEAR AGO
     Route: 048

REACTIONS (19)
  - Cardiac ventricular thrombosis [Recovered/Resolved]
  - Cardiac ventricular thrombosis [Recovered/Resolved]
  - Arthralgia [Not Recovered/Not Resolved]
  - Peripheral swelling [Not Recovered/Not Resolved]
  - Muscle spasms [Recovered/Resolved]
  - COVID-19 [Recovered/Resolved]
  - Bone pain [Recovered/Resolved]
  - Pyrexia [Recovered/Resolved]
  - Drug ineffective [Not Recovered/Not Resolved]
  - Blood calcium decreased [Unknown]
  - Vitamin D decreased [Unknown]
  - Movement disorder [Not Recovered/Not Resolved]
  - Gastrointestinal haemorrhage [Recovered/Resolved]
  - Gastrointestinal ulcer [Recovered/Resolved]
  - Coronary artery thrombosis [Recovered/Resolved]
  - Cough [Recovering/Resolving]
  - Nasopharyngitis [Recovering/Resolving]
  - Blood pressure increased [Recovering/Resolving]
  - Heart rate increased [Recovering/Resolving]

NARRATIVE: CASE EVENT DATE: 20220123
